FAERS Safety Report 8876228 (Version 1)
Quarter: 2012Q4

REPORT INFORMATION
  Report Type: 
  Country: PT (occurrence: PT)
  Receive Date: 20121030
  Receipt Date: 20121030
  Transmission Date: 20130627
  Serious: Yes (Other)
  Sender: FDA-Public Use
  Company Number: PT-009507513-1210PRT013180

PATIENT
  Sex: Female
  Weight: 77 kg

DRUGS (1)
  1. ZOELY [Suspect]
     Indication: CONTRACEPTION
     Route: 048
     Dates: start: 20120214, end: 20120615

REACTIONS (2)
  - Galactorrhoea [Recovered/Resolved]
  - Hyperprolactinaemia [Recovered/Resolved]
